FAERS Safety Report 10920707 (Version 1)
Quarter: 2015Q1

REPORT INFORMATION
  Report Type: Spontaneous
  Country: US (occurrence: None)
  Receive Date: 20150313
  Receipt Date: 20150313
  Transmission Date: 20150721
  Serious: Yes (Life-Threatening)
  Sender: FDA-Public Use
  Company Number: None

PATIENT
  Age: 30 Year
  Sex: Female
  Weight: 73.94 kg

DRUGS (5)
  1. TRETINOIN. [Concomitant]
     Active Substance: TRETINOIN
  2. ERYTHROMYCIN. [Concomitant]
     Active Substance: ERYTHROMYCIN
  3. ONE A DAY MULTIVITAMIN [Concomitant]
  4. BACTRIM DS [Suspect]
     Active Substance: SULFAMETHOXAZOLE\TRIMETHOPRIM
     Indication: URINARY TRACT INFECTION
     Dosage: 1 DOSE ONLY
     Route: 048
  5. KENALOG [Concomitant]
     Active Substance: TRIAMCINOLONE ACETONIDE

REACTIONS (7)
  - Heart rate increased [None]
  - Chills [None]
  - Palpitations [None]
  - Hypersensitivity [None]
  - Tremor [None]
  - Eye irritation [None]
  - Myalgia [None]

NARRATIVE: CASE EVENT DATE: 20150312
